FAERS Safety Report 14472751 (Version 3)
Quarter: 2018Q1

REPORT INFORMATION
  Report Type: Spontaneous
  Country: GB (occurrence: GB)
  Receive Date: 20180201
  Receipt Date: 20180215
  Transmission Date: 20180509
  Serious: Yes (Hospitalization)
  Sender: FDA-Public Use
  Company Number: GB-DEXPHARM-20180060

PATIENT
  Age: 34 Year
  Sex: Female

DRUGS (9)
  1. CHLORPHENAMINE [Concomitant]
     Active Substance: CHLORPHENIRAMINE MALEATE
     Route: 048
  2. CO-TROXIMAZOLE [Concomitant]
     Dosage: 480MG ON ALTERNATE DAYS
  3. CLOTRIMAZOLE. [Concomitant]
     Active Substance: CLOTRIMAZOLE
     Dosage: TWICE A DAY FOR THREE TIMES A WEEK
  4. METHYLPREDNISOLONE. [Concomitant]
     Active Substance: METHYLPREDNISOLONE
     Route: 042
  5. LEMTRADA [Suspect]
     Active Substance: ALEMTUZUMAB
     Indication: MULTIPLE SCLEROSIS
     Route: 041
     Dates: start: 20180115, end: 20180118
  6. OMEPRAZOLE. [Suspect]
     Active Substance: OMEPRAZOLE
  7. CO-TROXIMAZOLE [Concomitant]
     Dosage: 480MG TWICE A DAY FOR THREE TIMES A WEEK
  8. PARACETAMOL [Suspect]
     Active Substance: ACETAMINOPHEN
  9. ACYCLOVIR. [Concomitant]
     Active Substance: ACYCLOVIR

REACTIONS (5)
  - Headache [Recovering/Resolving]
  - Nausea [Recovering/Resolving]
  - Oropharyngeal pain [Recovering/Resolving]
  - Fatigue [Recovering/Resolving]
  - Poor venous access [Unknown]

NARRATIVE: CASE EVENT DATE: 20180115
